FAERS Safety Report 21061595 (Version 4)
Quarter: 2023Q2

REPORT INFORMATION
  Report Type: Report from Study
  Country: US (occurrence: US)
  Receive Date: 20220709
  Receipt Date: 20230630
  Transmission Date: 20230721
  Serious: Yes (Other)
  Sender: FDA-Public Use
  Company Number: US-NOVARTISPH-NVSC2022US156578

PATIENT
  Sex: Female

DRUGS (2)
  1. XIIDRA [Suspect]
     Active Substance: LIFITEGRAST
     Indication: Product used for unknown indication
     Dosage: 5 ML, OTHER (5% 5ML INSTILL 1 DROP IN EACH EYE TWICE A DAY AS DIRECTED)
     Route: 047
  2. XIIDRA [Suspect]
     Active Substance: LIFITEGRAST
     Dosage: UNK, BID
     Route: 065
     Dates: start: 20190716, end: 202106

REACTIONS (5)
  - Deafness [Unknown]
  - Visual impairment [Unknown]
  - Hypertension [Unknown]
  - Dry eye [Unknown]
  - Product dose omission issue [Unknown]
